FAERS Safety Report 22354206 (Version 1)
Quarter: 2023Q2

REPORT INFORMATION
  Report Type: Spontaneous
  Country: CN (occurrence: CN)
  Receive Date: 20230523
  Receipt Date: 20230523
  Transmission Date: 20230722
  Serious: Yes (Other)
  Sender: FDA-Public Use
  Company Number: CN-SA-SAC20230521000085

PATIENT
  Age: 58 Year
  Sex: Male
  Weight: 65 kg

DRUGS (1)
  1. OXALIPLATIN [Suspect]
     Active Substance: OXALIPLATIN
     Indication: Neoplasm
     Dosage: 240 MG, QD
     Route: 041
     Dates: start: 20230513, end: 20230513

REACTIONS (4)
  - Regurgitation [Recovered/Resolved]
  - Vomiting [Recovered/Resolved]
  - Dysphagia [Recovered/Resolved]
  - Nausea [Recovered/Resolved]

NARRATIVE: CASE EVENT DATE: 20230513
